FAERS Safety Report 21280115 (Version 1)
Quarter: 2022Q3

REPORT INFORMATION
  Report Type: Spontaneous
  Country: US (occurrence: None)
  Receive Date: 20220831
  Receipt Date: 20220831
  Transmission Date: 20221027
  Serious: Yes (Other)
  Sender: FDA-Public Use
  Company Number: None

PATIENT
  Sex: Male

DRUGS (1)
  1. PROPOFOL [Suspect]
     Active Substance: PROPOFOL
     Indication: Colonoscopy
     Route: 042
     Dates: start: 20220829, end: 20220829

REACTIONS (5)
  - Pain in extremity [None]
  - Arthralgia [None]
  - Injection site pain [None]
  - Injection site pain [None]
  - Myalgia [None]

NARRATIVE: CASE EVENT DATE: 20220829
